FAERS Safety Report 7213079-9 (Version None)
Quarter: 2010Q4

REPORT INFORMATION
  Report Type: 
  Country: None (occurrence: None)
  Receive Date: 20101227
  Receipt Date: 20101217
  Transmission Date: 20110411
  Serious: Yes (Other)
  Sender: FDA-Public Use
  Company Number: DKLU1067246

PATIENT
  Age: 9 Month
  Sex: Male

DRUGS (4)
  1. SABRIL [Suspect]
     Indication: INFANTILE SPASMS
     Dosage: 750 MILLIGRAM(S), 2 IN 1 D, ORAL
     Route: 048
     Dates: start: 20100526
  2. TOPAMAX [Concomitant]
  3. PHENOBARBITAL TAB [Concomitant]
  4. TRANXENE [Concomitant]

REACTIONS (2)
  - DRUG TOXICITY [None]
  - RETINITIS PIGMENTOSA [None]
